FAERS Safety Report 9753229 (Version 2)
Quarter: 2013Q4

REPORT INFORMATION
  Report Type: Spontaneous
  Country: US (occurrence: US)
  Receive Date: 20131213
  Receipt Date: 20131213
  Transmission Date: 20140711
  Serious: No
  Sender: FDA-Public Use
  Company Number: US-GILEAD-2010-0026836

PATIENT
  Sex: Female
  Weight: 64.86 kg

DRUGS (8)
  1. LETAIRIS [Suspect]
     Indication: PULMONARY ARTERIAL HYPERTENSION
     Route: 048
     Dates: start: 20090303
  2. REVATIO [Concomitant]
  3. OXYGEN [Concomitant]
  4. DARVOCET-N [Concomitant]
  5. ONE A DAY [Concomitant]
  6. BIAXIN [Concomitant]
  7. FLUTICASONE PROP SP [Concomitant]
  8. MUCINEX [Concomitant]

REACTIONS (1)
  - Sinusitis [Unknown]
